FAERS Safety Report 8449471-4 (Version None)
Quarter: 2012Q2

REPORT INFORMATION
  Report Type: 
  Country: None (occurrence: None)
  Receive Date: 20120619
  Receipt Date: 20120608
  Transmission Date: 20120825
  Serious: Yes (Hospitalization, Other)
  Sender: FDA-Public Use
  Company Number: US-MERCK-1202USA03519

PATIENT
  Age: 58 Year
  Sex: Female
  Weight: 79 kg

DRUGS (3)
  1. PREMPRO [Concomitant]
     Indication: HORMONE REPLACEMENT THERAPY
     Route: 048
     Dates: start: 19940101
  2. FOSAMAX [Suspect]
     Indication: OSTEOPOROSIS
     Route: 048
     Dates: start: 19950101, end: 20090701
  3. FOSAMAX [Suspect]
     Route: 048
     Dates: start: 19960101

REACTIONS (54)
  - BREAST CANCER [None]
  - PLEURAL EFFUSION [None]
  - MEDICAL DEVICE COMPLICATION [None]
  - HERNIA OBSTRUCTIVE [None]
  - GAIT DISTURBANCE [None]
  - FATIGUE [None]
  - BLADDER DISORDER [None]
  - ARTHROPATHY [None]
  - INTERSTITIAL LUNG DISEASE [None]
  - ABDOMINAL DISCOMFORT [None]
  - MICROVASCULAR ANGINA [None]
  - HYPOTHYROIDISM [None]
  - GOITRE [None]
  - FAECALOMA [None]
  - DRUG HYPERSENSITIVITY [None]
  - VARICELLA [None]
  - MEMORY IMPAIRMENT [None]
  - ESCHERICHIA INFECTION [None]
  - CONSTIPATION [None]
  - CARDIAC FAILURE CONGESTIVE [None]
  - LUMBAR SPINAL STENOSIS [None]
  - HIP FRACTURE [None]
  - HEART VALVE CALCIFICATION [None]
  - ASTHMA [None]
  - SPINAL OSTEOARTHRITIS [None]
  - INCREASED TENDENCY TO BRUISE [None]
  - ALOPECIA [None]
  - CHEST PAIN [None]
  - BLOOD PRESSURE INCREASED [None]
  - FRACTURE DELAYED UNION [None]
  - BACK PAIN [None]
  - BURSITIS [None]
  - HYPERTENSION [None]
  - GASTROOESOPHAGEAL REFLUX DISEASE [None]
  - DIARRHOEA [None]
  - FEMUR FRACTURE [None]
  - FALL [None]
  - LIMB INJURY [None]
  - CHEST DISCOMFORT [None]
  - DEPRESSION [None]
  - WEIGHT INCREASED [None]
  - WEIGHT DECREASED [None]
  - URINARY TRACT INFECTION [None]
  - THYROID CYST [None]
  - MITRAL VALVE PROLAPSE [None]
  - BLOOD INSULIN INCREASED [None]
  - HYPERLIPIDAEMIA [None]
  - DERMAL CYST [None]
  - PAIN [None]
  - GLUCOSE TOLERANCE IMPAIRED [None]
  - HAEMOLYTIC URAEMIC SYNDROME [None]
  - PALPITATIONS [None]
  - PAIN IN EXTREMITY [None]
  - HAEMORRHAGE [None]
